FAERS Safety Report 4728235-9 (Version None)
Quarter: 2005Q3

REPORT INFORMATION
  Report Type: 
  Country: None (occurrence: None)
  Receive Date: 20050728
  Receipt Date: 20050728
  Transmission Date: 20060218
  Serious: Yes (Hospitalization)
  Sender: FDA-Public Use
  Company Number: None

PATIENT
  Age: 61 Year
  Sex: Male
  Weight: 61 kg

DRUGS (15)
  1. SPIRONOLACTONE 25MG TAB [Suspect]
     Indication: CARDIAC FAILURE
     Dosage: 25 MG  QID   ORAL
     Route: 048
     Dates: start: 20040326, end: 20040828
  2. FOSINOPRIL SODIUM [Suspect]
     Indication: CARDIAC FAILURE
     Dosage: 20 MG   BID   ORAL
     Route: 048
     Dates: start: 20020530, end: 20040828
  3. FERROUS SULFATE TAB [Concomitant]
  4. FOSINOPRIL SODIUM [Concomitant]
  5. ISOSORBIDE DINITRATE [Concomitant]
  6. SIMVASTATIN [Concomitant]
  7. TRAZODONE HCL [Concomitant]
  8. MOM [Concomitant]
  9. LASIX [Concomitant]
  10. WARFARIN [Concomitant]
  11. DOCUSATE [Concomitant]
  12. FOLIC ACID [Concomitant]
  13. OMEPRAZOLE [Concomitant]
  14. NTG SL [Concomitant]
  15. MV [Concomitant]

REACTIONS (9)
  - ABDOMINAL PAIN [None]
  - BLOOD PRESSURE IMMEASURABLE [None]
  - BRADYCARDIA [None]
  - DRUG ABUSER [None]
  - DRUG SCREEN POSITIVE [None]
  - HYPERKALAEMIA [None]
  - ORAL INTAKE REDUCED [None]
  - RENAL FAILURE ACUTE [None]
  - SINUS ARREST [None]
